FAERS Safety Report 10508674 (Version 1)
Quarter: 2014Q4

REPORT INFORMATION
  Report Type: Report from Study
  Country: US (occurrence: US)
  Receive Date: 20141009
  Receipt Date: 20141009
  Transmission Date: 20150528
  Serious: Yes (Hospitalization)
  Sender: FDA-Public Use
  Company Number: US-BRISTOL-MYERS SQUIBB COMPANY-21454194

PATIENT
  Age: 62 Year
  Sex: Female
  Weight: 66.3 kg

DRUGS (1)
  1. IPILIMUMAB [Suspect]
     Active Substance: IPILIMUMAB
     Indication: MALIGNANT MELANOMA
     Dosage: 190MG, LAST ADMINSTRD DOSE 09JUL14
     Route: 042
     Dates: start: 20140528

REACTIONS (3)
  - Neck pain [Recovering/Resolving]
  - Confusional state [Recovering/Resolving]
  - Dehydration [Recovering/Resolving]

NARRATIVE: CASE EVENT DATE: 20140920
